FAERS Safety Report 7731758-1 (Version None)
Quarter: 2011Q3

REPORT INFORMATION
  Report Type: 
  Country: None (occurrence: None)
  Receive Date: 20110906
  Receipt Date: 20110829
  Transmission Date: 20111222
  Serious: Yes (Other)
  Sender: FDA-Public Use
  Company Number: PHHY2011FR77264

PATIENT
  Age: 56 Year
  Sex: Male

DRUGS (7)
  1. STRUCTUM [Concomitant]
     Dosage: UNK UKN, UNK
  2. VOLTAREN [Suspect]
     Indication: ARTHROPATHY
     Dosage: 100 MG, DAILY
     Route: 048
     Dates: start: 20080101, end: 20110101
  3. ALLOPURINOL [Suspect]
     Dosage: 100 MG, DAILY
     Route: 048
     Dates: start: 20110101
  4. VOLTAREN [Suspect]
     Dosage: 75 MG, DAILY
     Route: 048
     Dates: start: 20110101
  5. ESOMEPRAZOLE SODIUM [Suspect]
     Dosage: 40 MG, DAILY
     Route: 048
     Dates: start: 20080101, end: 20110101
  6. ESOMEPRAZOLE SODIUM [Suspect]
     Dosage: 20 MG, DAILY
     Route: 048
     Dates: start: 20110101
  7. ALLOPURINOL [Suspect]
     Dosage: 300 MG, DAILY
     Route: 048
     Dates: start: 20080101, end: 20110101

REACTIONS (2)
  - PAIN [None]
  - BLOOD CREATINE PHOSPHOKINASE INCREASED [None]
